FAERS Safety Report 19441943 (Version 3)
Quarter: 2021Q3

REPORT INFORMATION
  Report Type: Spontaneous
  Country: US (occurrence: US)
  Receive Date: 20210621
  Receipt Date: 20210907
  Transmission Date: 20211014
  Serious: Yes (Hospitalization)
  Sender: FDA-Public Use
  Company Number: US-BIOVITRUM-2021US5135

PATIENT
  Sex: Male

DRUGS (17)
  1. PULMICORT TURBUHALER [Concomitant]
     Active Substance: BUDESONIDE
  2. SYNAGIS [Suspect]
     Active Substance: PALIVIZUMAB
     Indication: PULMONARY VALVE STENOSIS CONGENITAL
  3. SYNAGIS [Suspect]
     Active Substance: PALIVIZUMAB
     Indication: TRACHEITIS
  4. SYNAGIS [Suspect]
     Active Substance: PALIVIZUMAB
     Indication: BRONCHOPULMONARY DYSPLASIA
  5. SYNAGIS [Suspect]
     Active Substance: PALIVIZUMAB
     Indication: ANAEMIA NEONATAL
  6. SYNAGIS [Suspect]
     Active Substance: PALIVIZUMAB
     Indication: RETINOPATHY OF PREMATURITY
  7. POLY?VI?SOL/IRON [Concomitant]
  8. SYNAGIS [Suspect]
     Active Substance: PALIVIZUMAB
     Indication: ANTIVIRAL PROPHYLAXIS
     Dosage: 100MG/1ML
     Route: 030
     Dates: start: 20210315
  9. FLOVENT HFA [Concomitant]
     Active Substance: FLUTICASONE PROPIONATE
  10. SYNAGIS [Suspect]
     Active Substance: PALIVIZUMAB
     Indication: GASTROOESOPHAGEAL REFLUX DISEASE
  11. DEXAMETHASONE SODIUM PHOS [Concomitant]
     Active Substance: DEXAMETHASONE SODIUM PHOSPHATE
  12. SYNAGIS [Suspect]
     Active Substance: PALIVIZUMAB
     Indication: PREMATURE BABY
  13. HYDROCHLOROTHIAZIDE. [Concomitant]
     Active Substance: HYDROCHLOROTHIAZIDE
  14. SYNAGIS [Suspect]
     Active Substance: PALIVIZUMAB
     Indication: PATENT DUCTUS ARTERIOSUS
  15. XOPENEX [Concomitant]
     Active Substance: LEVALBUTEROL HYDROCHLORIDE
  16. FUROSEMIDE. [Concomitant]
     Active Substance: FUROSEMIDE
  17. SYNAGIS [Suspect]
     Active Substance: PALIVIZUMAB
     Indication: MALNUTRITION

REACTIONS (4)
  - Respiratory syncytial virus infection [Recovered/Resolved]
  - Treatment noncompliance [Unknown]
  - Off label use [Unknown]
  - Product dose omission issue [Unknown]
